FAERS Safety Report 7517730-5 (Version None)
Quarter: 2011Q2

REPORT INFORMATION
  Report Type: 
  Country: None (occurrence: None)
  Receive Date: 20110602
  Receipt Date: 20110525
  Transmission Date: 20111010
  Serious: No
  Sender: FDA-Public Use
  Company Number: US-BIOGENIDEC-2011BI018851

PATIENT
  Age: 35 Year
  Sex: Male

DRUGS (1)
  1. TYSABRI [Suspect]
     Indication: MULTIPLE SCLEROSIS
     Route: 042
     Dates: start: 20110421

REACTIONS (5)
  - PAIN IN EXTREMITY [None]
  - ARTHRALGIA [None]
  - DYSPNOEA [None]
  - MUSCLE SPASMS [None]
  - DYSSTASIA [None]
